FAERS Safety Report 7020292-2 (Version None)
Quarter: 2010Q3

REPORT INFORMATION
  Report Type: 
  Country: None (occurrence: None)
  Receive Date: 20100929
  Receipt Date: 20100916
  Transmission Date: 20110219
  Serious: Yes (Hospitalization)
  Sender: FDA-Public Use
  Company Number: US-ELI_LILLY_AND_COMPANY-US201009003357

PATIENT
  Sex: Female

DRUGS (3)
  1. CYMBALTA [Suspect]
     Indication: DEPRESSION
     Dosage: 20 MG, UNK
  2. CYMBALTA [Suspect]
     Dosage: 60 MG, UNK
     Dates: start: 20100701
  3. CYMBALTA [Suspect]
     Dosage: 30 MG, UNK

REACTIONS (6)
  - CONFUSIONAL STATE [None]
  - DEPRESSION [None]
  - HOSPITALISATION [None]
  - MEDICATION ERROR [None]
  - SUICIDAL BEHAVIOUR [None]
  - THINKING ABNORMAL [None]
